FAERS Safety Report 17989724 (Version 1)
Quarter: 2020Q3

REPORT INFORMATION
  Report Type: Spontaneous
  Country: US (occurrence: US)
  Receive Date: 20200707
  Receipt Date: 20200707
  Transmission Date: 20201103
  Serious: Yes (Hospitalization)
  Sender: FDA-Public Use
  Company Number: None

PATIENT
  Age: 42 Year
  Sex: Female
  Weight: 66.7 kg

DRUGS (1)
  1. INSULIN REGULAR [Suspect]
     Active Substance: INSULIN NOS
     Indication: HYPERKALAEMIA
     Dates: start: 20200623, end: 20200623

REACTIONS (2)
  - Hyperkalaemia [None]
  - Chronic kidney disease [None]

NARRATIVE: CASE EVENT DATE: 20200623
